FAERS Safety Report 13628491 (Version 1)
Quarter: 2017Q2

REPORT INFORMATION
  Report Type: Spontaneous
  Country: US (occurrence: US)
  Receive Date: 20170607
  Receipt Date: 20170607
  Transmission Date: 20170830
  Serious: Yes (Hospitalization)
  Sender: FDA-Public Use
  Company Number: US-ALKERMES INC.-ALK-2017-001813

PATIENT
  Age: 32 Year
  Sex: Female
  Weight: 63.39 kg

DRUGS (5)
  1. VIVITROL [Suspect]
     Active Substance: NALTREXONE
     Indication: DRUG USE DISORDER
     Dosage: 380 MG, QMO
     Route: 030
     Dates: start: 20170504
  2. TRAZODONE [Concomitant]
     Active Substance: TRAZODONE HYDROCHLORIDE
     Indication: PRODUCT USED FOR UNKNOWN INDICATION
     Dosage: 50 MG, PRN
     Route: 048
  3. TYLENOL [Concomitant]
     Active Substance: ACETAMINOPHEN
     Indication: PRODUCT USED FOR UNKNOWN INDICATION
     Dosage: UNK, PRN
     Route: 048
  4. PROZAC [Concomitant]
     Active Substance: FLUOXETINE HYDROCHLORIDE
     Indication: PRODUCT USED FOR UNKNOWN INDICATION
     Dosage: 40 MG, UNK
     Route: 048
  5. WELLBUTRIN [Concomitant]
     Active Substance: BUPROPION HYDROCHLORIDE
     Indication: PRODUCT USED FOR UNKNOWN INDICATION
     Dosage: 150 MG, UNK
     Route: 048

REACTIONS (14)
  - Paralysis [Unknown]
  - Nausea [Unknown]
  - Withdrawal syndrome [Unknown]
  - Muscle spasms [Unknown]
  - Confusional state [Unknown]
  - Dizziness [Unknown]
  - Drug use disorder [Unknown]
  - Fall [Unknown]
  - Hyperhidrosis [Unknown]
  - Rash erythematous [Unknown]
  - Seizure [Unknown]
  - Overdose [Unknown]
  - Mental status changes [Unknown]
  - Drug administration error [Unknown]

NARRATIVE: CASE EVENT DATE: 201705
